FAERS Safety Report 6004686-X (Version None)
Quarter: 2008Q4

REPORT INFORMATION
  Report Type: 
  Country: None (occurrence: None)
  Receive Date: 20081216
  Receipt Date: 20081204
  Transmission Date: 20090506
  Serious: Yes (Other)
  Sender: FDA-Public Use
  Company Number: US-PFIZER INC-2008151930

PATIENT
  Sex: Male
  Weight: 81.646 kg

DRUGS (3)
  1. BEXTRA [Suspect]
     Indication: BACK PAIN
  2. EXCEDRIN (MIGRAINE) [Concomitant]
     Dosage: UNK
  3. DRUG, UNSPECIFIED [Concomitant]
     Dosage: UNK

REACTIONS (2)
  - BALANCE DISORDER [None]
  - CEREBROVASCULAR ACCIDENT [None]
